FAERS Safety Report 5064715-7 (Version None)
Quarter: 2006Q3

REPORT INFORMATION
  Report Type: 
  Country: None (occurrence: None)
  Receive Date: 20060728
  Receipt Date: 20060725
  Transmission Date: 20061208
  Serious: Yes (Hospitalization)
  Sender: FDA-Public Use
  Company Number: 455526

PATIENT
  Age: 82 Year
  Sex: Female

DRUGS (8)
  1. ARTIST [Suspect]
     Indication: HYPERTENSION
     Dosage: 10MG PER DAY
     Route: 048
     Dates: end: 20060110
  2. RENIVACE [Suspect]
     Indication: HYPERTENSION
     Dosage: 10MG PER DAY
     Route: 048
     Dates: end: 20060110
  3. ASPIRIN [Suspect]
     Indication: ANGINA PECTORIS
     Dosage: 100MG PER DAY
     Route: 048
     Dates: end: 20060110
  4. DIART [Concomitant]
     Indication: DRUG USE FOR UNKNOWN INDICATION
     Route: 065
  5. NORVASC [Concomitant]
     Indication: DRUG USE FOR UNKNOWN INDICATION
     Route: 065
  6. NITOROL [Concomitant]
     Indication: DRUG USE FOR UNKNOWN INDICATION
     Route: 065
     Dates: end: 20060110
  7. MUCOSTA [Concomitant]
     Indication: DRUG USE FOR UNKNOWN INDICATION
     Route: 065
     Dates: end: 20060110
  8. UNSPECIFIED MEDICATION [Concomitant]
     Indication: DRUG USE FOR UNKNOWN INDICATION
     Route: 065
     Dates: end: 20051128

REACTIONS (9)
  - ASTHENIA [None]
  - BLOOD INSULIN INCREASED [None]
  - COLD SWEAT [None]
  - DEPRESSED LEVEL OF CONSCIOUSNESS [None]
  - DISCOMFORT [None]
  - HYPERHIDROSIS [None]
  - HYPOGLYCAEMIA [None]
  - NASOPHARYNGITIS [None]
  - TREMOR [None]
